FAERS Safety Report 15993356 (Version 2)
Quarter: 2019Q2

REPORT INFORMATION
  Report Type: Report from Study
  Country: US (occurrence: US)
  Receive Date: 20190222
  Receipt Date: 20190424
  Transmission Date: 20190711
  Serious: Yes (Hospitalization)
  Sender: FDA-Public Use
  Company Number: PHEH2019US007201

PATIENT
  Sex: Male

DRUGS (1)
  1. ENTRESTO [Suspect]
     Active Substance: SACUBITRIL\VALSARTAN
     Indication: CARDIAC FAILURE CONGESTIVE
     Dosage: 1 DF (SACUBITRIL 49 MG/ VALSARTAN 51 MG), BID
     Route: 048

REACTIONS (4)
  - Dizziness [Unknown]
  - Arrhythmia [Unknown]
  - Syncope [Unknown]
  - Hypotension [Unknown]
